FAERS Safety Report 17339649 (Version 1)
Quarter: 2020Q1

REPORT INFORMATION
  Report Type: Spontaneous
  Country: US (occurrence: US)
  Receive Date: 20200113
  Receipt Date: 20200113
  Transmission Date: 20200409
  Serious: Yes (Death)
  Sender: FDA-Public Use
  Company Number: None

PATIENT
  Age: 40 Year
  Sex: Male
  Weight: 81.65 kg

DRUGS (1)
  1. LITHIUM. [Suspect]
     Active Substance: LITHIUM
     Indication: BIPOLAR DISORDER
     Route: 048
     Dates: end: 19841010

REACTIONS (6)
  - Hallucination [None]
  - Eye infection [None]
  - Emotional distress [None]
  - Malaise [None]
  - Hypersensitivity [None]
  - Nephrolithiasis [None]
